FAERS Safety Report 16103290 (Version 3)
Quarter: 2019Q3

REPORT INFORMATION
  Report Type: Spontaneous
  Country: US (occurrence: US)
  Receive Date: 20190322
  Receipt Date: 20190714
  Transmission Date: 20191004
  Serious: No
  Sender: FDA-Public Use
  Company Number: US-SHIRE-US201909111

PATIENT
  Sex: Female

DRUGS (1)
  1. GATTEX [Suspect]
     Active Substance: TEDUGLUTIDE\WATER
     Indication: SHORT-BOWEL SYNDROME
     Dosage: .215 MILLILITER, 1X/2WKS
     Route: 065
     Dates: start: 20190228

REACTIONS (5)
  - Abdominal distension [Unknown]
  - Hernia [Unknown]
  - Flushing [Unknown]
  - Weight increased [Unknown]
  - Stoma complication [Unknown]
